FAERS Safety Report 8971995 (Version 2)
Quarter: 2012Q4

REPORT INFORMATION
  Report Type: 
  Country: IL (occurrence: IL)
  Receive Date: 20121218
  Receipt Date: 20121220
  Transmission Date: 20130627
  Serious: Yes (Disabling, Other)
  Sender: FDA-Public Use
  Company Number: PHHY2012IL115808

PATIENT
  Age: 67 Year
  Sex: Male

DRUGS (2)
  1. ROPINIROLE [Suspect]
     Indication: PARKINSON^S DISEASE
     Dosage: 12 mg, QD
  2. BIPERIDEN [Suspect]
     Indication: PARKINSON^S DISEASE
     Dosage: 8 mg, QD

REACTIONS (5)
  - Tremor [Recovered/Resolved]
  - Disability [Recovered/Resolved]
  - Erectile dysfunction [Recovered/Resolved]
  - Libido increased [Recovered/Resolved]
  - Social phobia [Recovered/Resolved]
